FAERS Safety Report 9569757 (Version 1)
Quarter: 2013Q3

REPORT INFORMATION
  Report Type: Spontaneous
  Country: US (occurrence: US)
  Receive Date: 20130930
  Receipt Date: 20130930
  Transmission Date: 20140515
  Serious: No
  Sender: FDA-Public Use
  Company Number: US-AMGEN-USASP2013066305

PATIENT
  Age: 31 Year
  Sex: Male
  Weight: 98.41 kg

DRUGS (1)
  1. ENBREL [Suspect]
     Indication: PSORIATIC ARTHROPATHY
     Dosage: 50 MG, QWK
     Route: 058
     Dates: start: 20090301

REACTIONS (3)
  - Malaise [Unknown]
  - Cough [Unknown]
  - Upper-airway cough syndrome [Unknown]
